FAERS Safety Report 20138762 (Version 9)
Quarter: 2022Q4

REPORT INFORMATION
  Report Type: Report from Study
  Country: BR (occurrence: BR)
  Receive Date: 20211202
  Receipt Date: 20221004
  Transmission Date: 20230113
  Serious: Yes (Other)
  Sender: FDA-Public Use
  Company Number: BR-NOVARTISPH-NVSC2021BR143476

PATIENT
  Age: 67 Year
  Sex: Female
  Weight: 50 kg

DRUGS (12)
  1. PIQRAY [Suspect]
     Active Substance: ALPELISIB
     Indication: Breast neoplasm
     Dosage: UNK
     Route: 065
     Dates: start: 20210517
  2. PIQRAY [Suspect]
     Active Substance: ALPELISIB
     Indication: Metastases to bone
     Dosage: UNK (TABLET)
     Route: 065
     Dates: start: 20210520
  3. PIQRAY [Suspect]
     Active Substance: ALPELISIB
     Indication: Chemotherapy
     Dosage: 250 MG, QD (1 TIME PER DAY) (DAILY AFTER LUNCH)
     Route: 048
     Dates: start: 20210520
  4. PIQRAY [Suspect]
     Active Substance: ALPELISIB
     Dosage: 300 MG
     Route: 065
     Dates: start: 20210520
  5. PIQRAY [Suspect]
     Active Substance: ALPELISIB
     Dosage: UNK
     Route: 065
     Dates: start: 20210524
  6. PIQRAY [Suspect]
     Active Substance: ALPELISIB
     Dosage: 250 MG
     Route: 065
     Dates: start: 20210610
  7. PIQRAY [Suspect]
     Active Substance: ALPELISIB
     Dosage: 300 MG, 1 TIME PER DAY
     Route: 048
  8. PIQRAY [Suspect]
     Active Substance: ALPELISIB
     Dosage: UNK
     Route: 065
  9. PIQRAY [Suspect]
     Active Substance: ALPELISIB
     Dosage: UNK
     Route: 065
     Dates: end: 202108
  10. FULVESTRANT [Suspect]
     Active Substance: FULVESTRANT
     Indication: Metastases to bone
     Dosage: UNK (EVERY 28 DAYS)
     Route: 048
     Dates: start: 20210520
  11. ROSUVASTATIN [Concomitant]
     Active Substance: ROSUVASTATIN
     Indication: Blood cholesterol
     Dosage: 1 DOSAGE FORM (AT NIGHT)
     Route: 048
     Dates: start: 2014
  12. AROMASIN [Concomitant]
     Active Substance: EXEMESTANE
     Indication: Product used for unknown indication
     Dosage: 25 MG
     Route: 065

REACTIONS (27)
  - Type 2 diabetes mellitus [Recovered/Resolved]
  - Blood glucose increased [Recovered/Resolved]
  - Blood glucose abnormal [Recovering/Resolving]
  - Metastasis [Unknown]
  - Weight decreased [Recovering/Resolving]
  - Hypotension [Recovering/Resolving]
  - Dizziness [Recovering/Resolving]
  - Malaise [Recovering/Resolving]
  - Lip dry [Recovered/Resolved]
  - Diarrhoea [Unknown]
  - Blood creatinine increased [Recovering/Resolving]
  - Joint swelling [Not Recovered/Not Resolved]
  - Spinal pain [Unknown]
  - Spinal deformity [Unknown]
  - Balance disorder [Unknown]
  - COVID-19 [Unknown]
  - Back pain [Unknown]
  - Dry mouth [Unknown]
  - Tumour marker decreased [Unknown]
  - Glycosylated haemoglobin increased [Unknown]
  - Hyperglycaemia [Not Recovered/Not Resolved]
  - Fatigue [Unknown]
  - Blood thyroid stimulating hormone increased [Recovered/Resolved]
  - Blood thyroid stimulating hormone increased [Recovered/Resolved]
  - Tendonitis [Unknown]
  - Incorrect dose administered [Not Recovered/Not Resolved]
  - Drug ineffective [Unknown]

NARRATIVE: CASE EVENT DATE: 20210520
